FAERS Safety Report 26030661 (Version 1)
Quarter: 2025Q4

REPORT INFORMATION
  Report Type: Spontaneous
  Country: CN (occurrence: CN)
  Receive Date: 20251112
  Receipt Date: 20251112
  Transmission Date: 20260117
  Serious: Yes (Death, Hospitalization, Other)
  Sender: ADAMAS PHARMA
  Company Number: CN-ADM-ADM202511-004601

PATIENT
  Age: 59 Year
  Sex: Female

DRUGS (4)
  1. AMANTADINE HYDROCHLORIDE [Suspect]
     Active Substance: AMANTADINE HYDROCHLORIDE
     Indication: Parkinson^s disease
     Dosage: NOT PROVIDED
  2. MEMANTINE [Suspect]
     Active Substance: MEMANTINE
     Indication: Parkinson^s disease
     Dosage: NOT PROVIDED
  3. QUETIAPINE [Suspect]
     Active Substance: QUETIAPINE
     Indication: Affective disorder
     Dosage: 12.5 MG QN
  4. OLANZAPINE [Suspect]
     Active Substance: OLANZAPINE
     Indication: Affective disorder
     Dosage: 1.25 MG QN

REACTIONS (2)
  - Disseminated intravascular coagulation [Fatal]
  - Neuroleptic malignant syndrome [Unknown]
